FAERS Safety Report 7604405-7 (Version None)
Quarter: 2011Q2

REPORT INFORMATION
  Report Type: 
  Country: None (occurrence: None)
  Receive Date: 20110630
  Receipt Date: 20110616
  Transmission Date: 20111010
  Serious: Yes (Other)
  Sender: FDA-Public Use
  Company Number: 2011AT000193

PATIENT
  Age: 76 Year
  Sex: Male

DRUGS (6)
  1. LEVOTHYROXINE SODIUM [Concomitant]
  2. ACTOS [Concomitant]
  3. AMARYL [Concomitant]
  4. AMLODIPINE BESYLATE [Concomitant]
  5. EDEX [Suspect]
     Indication: ERECTILE DYSFUNCTION
     Dosage: 10 UG; ; ICAN, 20 UG; BIW; ICAN
     Dates: end: 20100501
  6. EDEX [Suspect]
     Indication: ERECTILE DYSFUNCTION
     Dosage: 10 UG; ; ICAN, 20 UG; BIW; ICAN
     Dates: start: 20100517, end: 20110521

REACTIONS (3)
  - DRUG INEFFECTIVE [None]
  - MONOPLEGIA [None]
  - PAIN IN EXTREMITY [None]
